FAERS Safety Report 8524325 (Version 2)
Quarter: 2013Q3

REPORT INFORMATION
  Report Type: Spontaneous
  Country: US (occurrence: US)
  Receive Date: 20120420
  Receipt Date: 20130703
  Transmission Date: 20140515
  Serious: Yes (Other)
  Sender: FDA-Public Use
  Company Number: CHPA2012US008991

PATIENT
  Age: 58 Year
  Sex: Female

DRUGS (7)
  1. MAALOX ANTACID/ANTIGAS RS LIQ COOL MINT [Suspect]
     Indication: BURNING SENSATION
     Dosage: 1 TSP, UNK
     Route: 048
     Dates: start: 2009, end: 20120405
  2. MAALOX ANTACID/ANTIGAS RS LIQ COOL MINT [Suspect]
     Dosage: 3 TSP, UNK
     Route: 048
  3. EXCEDRIN MIGRAINE [Suspect]
     Indication: HEADACHE
     Dosage: 1-2, WHEN NEEDED
     Route: 048
  4. DARVOCET-N [Suspect]
     Dosage: UNK, UNK
  5. BISACODYL [Concomitant]
  6. BENADRYL ^PARKE DAVIS^                  /AUT/ [Concomitant]
  7. CRESTOR [Concomitant]
     Indication: BLOOD CHOLESTEROL INCREASED
     Dosage: UNK
     Dates: start: 2008

REACTIONS (13)
  - Cerebrovascular accident [Unknown]
  - Haemorrhage [Recovered/Resolved]
  - Fibromyalgia [Not Recovered/Not Resolved]
  - Thrombosis [Unknown]
  - Abasia [Recovered/Resolved]
  - Depression [Not Recovered/Not Resolved]
  - Weight decreased [Recovered/Resolved]
  - Pain [Recovered/Resolved]
  - Diplopia [Recovered/Resolved]
  - Burning sensation [Not Recovered/Not Resolved]
  - Underdose [Unknown]
  - Insomnia [Unknown]
  - Concomitant disease aggravated [Unknown]
